FAERS Safety Report 24569750 (Version 1)
Quarter: 2024Q4

REPORT INFORMATION
  Report Type: Spontaneous
  Country: US (occurrence: US)
  Receive Date: 20241031
  Receipt Date: 20241031
  Transmission Date: 20250114
  Serious: Yes (Other)
  Sender: NOVARTIS
  Company Number: US-002147023-NVSC2024US207724

PATIENT
  Age: 29 Year
  Sex: Female
  Weight: 83.9 kg

DRUGS (4)
  1. VALSARTAN [Suspect]
     Active Substance: VALSARTAN
     Indication: Product used for unknown indication
     Dosage: UNK
     Route: 065
  2. PRISTIQ EXTENDED-RELEASE [Suspect]
     Active Substance: DESVENLAFAXINE SUCCINATE
     Indication: Product used for unknown indication
     Dosage: 50 MG
     Route: 065
  3. PROPRANOLOL [Suspect]
     Active Substance: PROPRANOLOL HYDROCHLORIDE
     Indication: Product used for unknown indication
     Dosage: 10 MG, PRN
     Route: 065
  4. BUSPAR [Suspect]
     Active Substance: BUSPIRONE HYDROCHLORIDE
     Indication: Product used for unknown indication
     Dosage: 50 MG, BID
     Route: 065

REACTIONS (10)
  - Ventricular tachycardia [Unknown]
  - Alopecia [Unknown]
  - Stress [Unknown]
  - Anxiety disorder [Unknown]
  - Chest discomfort [Unknown]
  - Dyspnoea [Unknown]
  - Hot flush [Unknown]
  - Abdominal discomfort [Unknown]
  - Mood swings [Unknown]
  - Pain [Unknown]
